FAERS Safety Report 22747357 (Version 3)
Quarter: 2024Q4

REPORT INFORMATION
  Report Type: Report from Study
  Country: US (occurrence: US)
  Receive Date: 20230725
  Receipt Date: 20241016
  Transmission Date: 20250114
  Serious: No
  Sender: NOVARTIS
  Company Number: US-002147023-NVSC2023US163091

PATIENT
  Age: 85 Year
  Sex: Female

DRUGS (2)
  1. ENTRESTO [Suspect]
     Active Substance: SACUBITRIL\VALSARTAN
     Indication: Heart valve incompetence
     Dosage: 1 DOSAGE FORM, BID
     Route: 048
     Dates: start: 20230717
  2. ENTRESTO [Suspect]
     Active Substance: SACUBITRIL\VALSARTAN
     Dosage: UNK, BID
     Route: 065

REACTIONS (3)
  - Hypotension [Unknown]
  - Product use in unapproved indication [Unknown]
  - Dyspnoea [Unknown]

NARRATIVE: CASE EVENT DATE: 20230724
